FAERS Safety Report 15043798 (Version 1)
Quarter: 2018Q2

REPORT INFORMATION
  Report Type: Spontaneous
  Country: US (occurrence: US)
  Receive Date: 20180621
  Receipt Date: 20180621
  Transmission Date: 20180711
  Serious: Yes (Life-Threatening, Hospitalization)
  Sender: FDA-Public Use
  Company Number: US-MYLANLABS-2018M1042739

PATIENT
  Age: 55 Year
  Sex: Male

DRUGS (1)
  1. BACLOFEN. [Suspect]
     Active Substance: BACLOFEN
     Indication: HICCUPS
     Dosage: FOUR DOSES OF BACLOFEN 5MG OVER A 24 HOUR PERIOD
     Route: 065

REACTIONS (2)
  - Toxicity to various agents [Recovering/Resolving]
  - Neurotoxicity [Recovering/Resolving]
